FAERS Safety Report 9882544 (Version 1)
Quarter: 2014Q1

REPORT INFORMATION
  Report Type: Spontaneous
  Country: US (occurrence: US)
  Receive Date: 20140207
  Receipt Date: 20140207
  Transmission Date: 20141002
  Serious: No
  Sender: FDA-Public Use
  Company Number: US-009507513-1402USA000909

PATIENT
  Age: 44 Year
  Sex: Male

DRUGS (4)
  1. ZETIA [Suspect]
     Indication: HYPERCHOLESTEROLAEMIA
     Dosage: 10 MG, QD
     Route: 048
     Dates: start: 20140102
  2. ASPIRIN [Suspect]
     Dosage: 81 MG, QD
     Dates: start: 20140102
  3. TRICOR (ADENOSINE) [Concomitant]
     Dosage: UNK
  4. SIMVASTATIN TABLETS, USP [Concomitant]
     Dosage: UNK

REACTIONS (2)
  - Tinnitus [Not Recovered/Not Resolved]
  - Irritability [Not Recovered/Not Resolved]
